FAERS Safety Report 4841115-3 (Version None)
Quarter: 2005Q4

REPORT INFORMATION
  Report Type: 
  Country: None (occurrence: None)
  Receive Date: 20051130
  Receipt Date: 20051005
  Transmission Date: 20060501
  Serious: No
  Sender: FDA-Public Use
  Company Number: US-BRISTOL-MYERS SQUIBB COMPANY-13133491

PATIENT
  Age: 44 Year
  Sex: Male

DRUGS (3)
  1. ABILIFY [Suspect]
  2. RISPERDAL [Concomitant]
  3. LITHIUM [Concomitant]

REACTIONS (3)
  - DELUSION [None]
  - HALLUCINATION [None]
  - PSYCHOTIC DISORDER [None]
